FAERS Safety Report 13740163 (Version 1)
Quarter: 2017Q3

REPORT INFORMATION
  Report Type: Report from Study
  Country: US (occurrence: US)
  Receive Date: 20170711
  Receipt Date: 20170711
  Transmission Date: 20171127
  Serious: Yes (Hospitalization)
  Sender: FDA-Public Use
  Company Number: US-PFIZER INC-2017217392

PATIENT
  Age: 56 Year
  Sex: Male

DRUGS (1)
  1. SUTENT [Suspect]
     Active Substance: SUNITINIB MALATE
     Indication: RENAL CELL CARCINOMA
     Dosage: 50 MG, 1X/DAY
     Route: 048
     Dates: start: 20170505, end: 20170622

REACTIONS (12)
  - Stomatitis [Not Recovered/Not Resolved]
  - Mucosal inflammation [Recovering/Resolving]
  - Fatigue [Recovering/Resolving]
  - Dehydration [Unknown]
  - Yellow skin [Unknown]
  - Dysgeusia [Unknown]
  - Pruritus [Recovering/Resolving]
  - Pyrexia [Recovering/Resolving]
  - Constipation [Unknown]
  - Nausea [Recovering/Resolving]
  - Dizziness [Recovering/Resolving]
  - Night sweats [Unknown]

NARRATIVE: CASE EVENT DATE: 201705
